FAERS Safety Report 6921388-3 (Version None)
Quarter: 2010Q3

REPORT INFORMATION
  Report Type: 
  Country: None (occurrence: None)
  Receive Date: 20100812
  Receipt Date: 20100729
  Transmission Date: 20110219
  Serious: Yes (Congenital Anomaly, Other)
  Sender: FDA-Public Use
  Company Number: PHNR2006AU01393

PATIENT
  Sex: Female
  Weight: 53 kg

DRUGS (5)
  1. CLOZARIL [Suspect]
     Indication: BIPOLAR DISORDER
     Dosage: 100-500MG DAILY
     Route: 048
     Dates: start: 20030428, end: 20050601
  2. CLOZARIL [Suspect]
     Dosage: 200-500MG DAILY
     Route: 048
     Dates: start: 20060508
  3. CLONAZEPAM [Concomitant]
     Dosage: 2MG DAILY
     Route: 048
     Dates: start: 20050501
  4. LAMOTRIGINE [Concomitant]
     Dosage: 300 MG DAILY
     Dates: start: 20050401
  5. SERTRALINE HYDROCHLORIDE [Concomitant]
     Dosage: 100 MG DAILY
     Route: 048
     Dates: start: 20030101

REACTIONS (3)
  - ABORTION SPONTANEOUS [None]
  - DRUG EXPOSURE DURING PREGNANCY [None]
  - FOETAL CEREBROVASCULAR DISORDER [None]
